FAERS Safety Report 8625538-2 (Version None)
Quarter: 2012Q3

REPORT INFORMATION
  Report Type: 
  Country: None (occurrence: None)
  Receive Date: 20120827
  Receipt Date: 20120816
  Transmission Date: 20120928
  Serious: Yes (Life-Threatening, Hospitalization)
  Sender: FDA-Public Use
  Company Number: DE-ROCHE-1102551

PATIENT
  Sex: Female
  Weight: 140.6 kg

DRUGS (8)
  1. PANTOPRAZOLE [Concomitant]
     Dates: start: 20100916
  2. ENOXAPARIN [Concomitant]
     Dates: start: 20110804
  3. CALCIUM CARBONATE [Concomitant]
     Dates: start: 20111224
  4. NATRIUMHYDROGENCARBONAT [Concomitant]
     Dates: start: 20090108
  5. SEVELAMER CARBONATE [Concomitant]
     Dates: start: 20111213
  6. CALCITRIOL [Concomitant]
     Dates: start: 20110826
  7. LEVOTHYROXINE SODIUM [Concomitant]
     Dates: start: 20110913
  8. MIRCERA [Suspect]
     Indication: NEPHROGENIC ANAEMIA
     Dosage: DATE OF LAST DOSE PRIOR TO SAE: 20/DEC/2011
     Route: 042
     Dates: start: 20080130

REACTIONS (2)
  - PUPILS UNEQUAL [None]
  - CEREBRAL INFARCTION [None]
